FAERS Safety Report 12874839 (Version 2)
Quarter: 2016Q4

REPORT INFORMATION
  Report Type: Report from Study
  Country: IN (occurrence: IN)
  Receive Date: 20161022
  Receipt Date: 20161025
  Transmission Date: 20170207
  Serious: Yes (Hospitalization)
  Sender: FDA-Public Use
  Company Number: IN-ROCHE-1842950

PATIENT
  Age: 45 Year
  Sex: Female
  Weight: 54.6 kg

DRUGS (7)
  1. PERTUZUMAB [Suspect]
     Active Substance: PERTUZUMAB
     Dosage: MAINTENANCE DOSE?LAST DOSE PRIOR TO EVENT ONSET ON 07/OCT/2016.
     Route: 042
  2. DOCETAXEL. [Suspect]
     Active Substance: DOCETAXEL
     Dosage: CYCLE 2?LAST DOSE PRIOR TO EVENT ONSET ON 07/OCT/2016
     Route: 042
     Dates: start: 20160914
  3. HUMAN INSULIN [Concomitant]
     Active Substance: INSULIN HUMAN
  4. TRASTUZUMAB [Suspect]
     Active Substance: TRASTUZUMAB
     Indication: BREAST CANCER METASTATIC
     Dosage: CYCLE 1
     Route: 042
     Dates: start: 20160825
  5. DOCETAXEL. [Suspect]
     Active Substance: DOCETAXEL
     Indication: BREAST CANCER METASTATIC
     Dosage: CYCLE 1
     Route: 042
     Dates: start: 20160825
  6. PERTUZUMAB [Suspect]
     Active Substance: PERTUZUMAB
     Indication: BREAST CANCER METASTATIC
     Dosage: CYCLE 1 ONLY AS PER PROTOCOL?LOADING DOSE
     Route: 042
     Dates: start: 20160825
  7. TRASTUZUMAB [Suspect]
     Active Substance: TRASTUZUMAB
     Dosage: CYCLE 2, LAST DOSE PRIOR TO EVENT ONSET ON 07/OCT/2016
     Route: 042
     Dates: start: 20160914

REACTIONS (1)
  - Gastroenteritis [Recovered/Resolved]

NARRATIVE: CASE EVENT DATE: 20161014
